FAERS Safety Report 10575496 (Version 1)
Quarter: 2014Q4

REPORT INFORMATION
  Report Type: Spontaneous
  Country: US (occurrence: None)
  Receive Date: 20141107
  Receipt Date: 20141107
  Transmission Date: 20150529
  Serious: Yes (Death, Hospitalization)
  Sender: FDA-Public Use
  Company Number: IMP_08046_2014

PATIENT
  Age: 37 Year
  Sex: Female

DRUGS (2)
  1. CHLOROQUINE PHOSPHATE. [Suspect]
     Active Substance: CHLOROQUINE PHOSPHATE
     Indication: PRODUCT USED FOR UNKNOWN INDICATION
     Dosage: (25 DF 1X) UNTIL NOT CONTINUING
  2. HYDROXYCHLOROQUINE (HYDROXYCHLOROQUINE) 200 MG [Suspect]
     Active Substance: HYDROXYCHLOROQUINE
     Indication: PRODUCT USED FOR UNKNOWN INDICATION
     Dosage: 30 DF 1X
     Dates: end: 200908

REACTIONS (11)
  - Coma scale abnormal [None]
  - Torsade de pointes [None]
  - Sinus tachycardia [None]
  - Electrocardiogram QRS complex prolonged [None]
  - Cardiac arrest [None]
  - Overdose [None]
  - Blood pressure decreased [None]
  - Hypokalaemia [None]
  - Haemodynamic instability [None]
  - Ventricular fibrillation [None]
  - Suicide attempt [None]

NARRATIVE: CASE EVENT DATE: 200908
